FAERS Safety Report 25682560 (Version 2)
Quarter: 2025Q3

REPORT INFORMATION
  Report Type: Spontaneous
  Country: US (occurrence: US)
  Receive Date: 20250814
  Receipt Date: 20250826
  Transmission Date: 20251020
  Serious: Yes (Life-Threatening, Hospitalization)
  Sender: TEVA
  Company Number: US-TEVA-VS-3360147

PATIENT
  Age: 56 Year
  Sex: Female

DRUGS (11)
  1. ALBUTEROL [Suspect]
     Active Substance: ALBUTEROL
     Indication: Organising pneumonia
     Route: 065
  2. PREDNISONE [Suspect]
     Active Substance: PREDNISONE
     Indication: Organising pneumonia
     Route: 065
  3. CEFDINIR [Concomitant]
     Active Substance: CEFDINIR
     Indication: Antibiotic therapy
     Route: 065
  4. PSEUDOEPHEDRINE [Suspect]
     Active Substance: PSEUDOEPHEDRINE
     Indication: Organising pneumonia
     Route: 065
  5. BENZONATATE [Suspect]
     Active Substance: BENZONATATE
     Indication: Organising pneumonia
     Route: 065
  6. OCRELIZUMAB [Suspect]
     Active Substance: OCRELIZUMAB
     Indication: Multiple sclerosis
     Route: 065
  7. DOXYCYCLINE [Concomitant]
     Active Substance: DOXYCYCLINE
     Indication: Antibiotic therapy
     Route: 065
  8. UNSPECIFIED INGREDIENT [Suspect]
     Active Substance: UNSPECIFIED INGREDIENT
     Route: 065
  9. DEVICE [Suspect]
     Active Substance: DEVICE
     Route: 065
  10. DEVICE [Suspect]
     Active Substance: DEVICE
     Route: 065
  11. DEVICE [Suspect]
     Active Substance: DEVICE
     Route: 065

REACTIONS (3)
  - Organising pneumonia [Recovering/Resolving]
  - Drug ineffective [Unknown]
  - Respiratory failure [Recovering/Resolving]
